FAERS Safety Report 25566961 (Version 1)
Quarter: 2025Q3

REPORT INFORMATION
  Report Type: Spontaneous
  Country: US (occurrence: None)
  Receive Date: 20250716
  Receipt Date: 20250716
  Transmission Date: 20251020
  Serious: Yes (Disabling)
  Sender: FDA-CTU
  Company Number: None

PATIENT
  Age: 31 Year

DRUGS (2)
  1. BRIMONIDINE TARTRATE [Suspect]
     Active Substance: BRIMONIDINE TARTRATE
  2. PILOCARPINE [Suspect]
     Active Substance: PILOCARPINE

REACTIONS (5)
  - Fatigue [None]
  - Vision blurred [None]
  - Eye irritation [None]
  - Burning sensation [None]
  - Anxiety [None]

NARRATIVE: CASE EVENT DATE: 20241210
